FAERS Safety Report 5085215-4 (Version None)
Quarter: 2006Q3

REPORT INFORMATION
  Report Type: 
  Country: None (occurrence: None)
  Receive Date: 20060816
  Receipt Date: 20060803
  Transmission Date: 20061208
  Serious: Yes (Hospitalization, Other)
  Sender: FDA-Public Use
  Company Number: 2006RR-03211

PATIENT
  Age: 77 Year
  Sex: Male

DRUGS (4)
  1. LISINOPRIL [Suspect]
     Dosage: 20 MG, ORAL
     Route: 048
     Dates: start: 20050101, end: 20060630
  2. ZESTORETIC(HYDROCHLOROTHIAZIDE) [Suspect]
     Indication: HYPERTENSION
     Dosage: 20 MG, ORAL
     Route: 048
     Dates: start: 20050101, end: 20060630
  3. AMLODIPINE [Concomitant]
  4. SYMBICORT [Concomitant]

REACTIONS (3)
  - ANGIONEUROTIC OEDEMA [None]
  - OEDEMA MOUTH [None]
  - SWOLLEN TONGUE [None]
